FAERS Safety Report 8890594 (Version 5)
Quarter: 2013Q2

REPORT INFORMATION
  Report Type: Spontaneous
  Country: TW (occurrence: TW)
  Receive Date: 20121107
  Receipt Date: 20130415
  Transmission Date: 20140414
  Serious: Yes (Other)
  Sender: FDA-Public Use
  Company Number: PHHY2012TW084827

PATIENT
  Sex: Female

DRUGS (1)
  1. FEMARA [Suspect]
     Indication: BREAST CANCER
     Dosage: 1 DF, QD
     Route: 048
     Dates: start: 2012

REACTIONS (12)
  - Gastrooesophageal reflux disease [Recovering/Resolving]
  - Abdominal discomfort [Not Recovered/Not Resolved]
  - Nausea [Recovering/Resolving]
  - Joint stiffness [Not Recovered/Not Resolved]
  - Osteoporosis [Recovering/Resolving]
  - Osteoarthritis [Recovering/Resolving]
  - Arthralgia [Recovering/Resolving]
  - Joint swelling [Recovering/Resolving]
  - Libido decreased [Recovering/Resolving]
  - Flatulence [Recovering/Resolving]
  - Dry skin [Recovering/Resolving]
  - Back pain [Unknown]
